FAERS Safety Report 14835005 (Version 1)
Quarter: 2018Q2

REPORT INFORMATION
  Report Type: Spontaneous
  Country: BR (occurrence: BR)
  Receive Date: 20180501
  Receipt Date: 20180501
  Transmission Date: 20180711
  Serious: Yes (Other)
  Sender: FDA-Public Use
  Company Number: BR-AMGEN-BRASP2018048263

PATIENT
  Age: 56 Year
  Sex: Female

DRUGS (1)
  1. ENBREL [Suspect]
     Active Substance: ETANERCEPT
     Indication: PRODUCT USED FOR UNKNOWN INDICATION
     Dosage: UNK
     Route: 065
     Dates: start: 20180310, end: 20180407

REACTIONS (14)
  - Abnormal faeces [Unknown]
  - Fungal skin infection [Not Recovered/Not Resolved]
  - Blood glucose increased [Unknown]
  - Epistaxis [Not Recovered/Not Resolved]
  - Limb injury [Unknown]
  - Onychomycosis [Not Recovered/Not Resolved]
  - Skin exfoliation [Unknown]
  - Scab [Not Recovered/Not Resolved]
  - Haematochezia [Unknown]
  - Chills [Unknown]
  - Nasal injury [Not Recovered/Not Resolved]
  - Impaired healing [Not Recovered/Not Resolved]
  - Blood pressure increased [Unknown]
  - Dyschezia [Unknown]
